FAERS Safety Report 8309202-5 (Version None)
Quarter: 2012Q2

REPORT INFORMATION
  Report Type: 
  Country: None (occurrence: None)
  Receive Date: 20120424
  Receipt Date: 20120420
  Transmission Date: 20120825
  Serious: Yes (Hospitalization, Other)
  Sender: FDA-Public Use
  Company Number: PHHY2012FR018085

PATIENT
  Sex: Male

DRUGS (8)
  1. SIMVASTATIN [Suspect]
     Dosage: 40 MG, QD
     Route: 048
     Dates: start: 20060101, end: 20120108
  2. TRILEPTAL [Suspect]
     Dosage: 300 MG, BID
     Route: 048
  3. PERINDOPRIL ERBUMINE [Suspect]
     Dosage: 1 DF, QD
     Route: 048
     Dates: end: 20120108
  4. ASPIRIN [Concomitant]
     Dosage: 1 DF, QD
     Route: 048
  5. TRILEPTAL [Suspect]
     Dosage: 300 MG, QD
     Route: 048
     Dates: start: 20120108
  6. TENORMIN [Concomitant]
     Dosage: 1 DF, QD
     Route: 048
  7. ESOMEPRAZOLE MAGNESIUM [Concomitant]
     Dosage: UNK UKN, PRN
     Route: 048
  8. LEVOTHYROXINE SODIUM [Concomitant]
     Dosage: 1 DF, QD
     Route: 048

REACTIONS (4)
  - MYALGIA [None]
  - RHABDOMYOLYSIS [None]
  - ANURIA [None]
  - HYPONATRAEMIA [None]
